FAERS Safety Report 4301908-8 (Version None)
Quarter: 2004Q1

REPORT INFORMATION
  Report Type: 
  Country: None (occurrence: None)
  Receive Date: 20040218
  Receipt Date: 20031110
  Transmission Date: 20041129
  Serious: Yes (Hospitalization)
  Sender: FDA-Public Use
  Company Number: 200319717US

PATIENT
  Age: 72 Year
  Sex: Female

DRUGS (4)
  1. LANTUS [Suspect]
     Indication: DIABETES MELLITUS
     Dosage: IV
     Route: 042
  2. LANTUS [Suspect]
     Indication: DIABETES MELLITUS
     Dosage: SC
     Route: 058
  3. TOTAL PARANTERAL NUTRITION [Concomitant]
  4. INSULIN PORCINE (REGULAR INSULIN) [Concomitant]

REACTIONS (1)
  - HYPOGLYCAEMIA [None]
